FAERS Safety Report 5861958-7 (Version None)
Quarter: 2008Q3

REPORT INFORMATION
  Report Type: 
  Country: None (occurrence: None)
  Receive Date: 20080827
  Receipt Date: 20080723
  Transmission Date: 20090109
  Serious: No
  Sender: FDA-Public Use
  Company Number: US-ABBOTT-08P-163-0465268-00

PATIENT
  Sex: Female

DRUGS (7)
  1. NIASPAN [Suspect]
     Indication: BLOOD CHOLESTEROL INCREASED
     Route: 048
     Dates: start: 20080716
  2. METROOROLOL [Concomitant]
     Indication: HYPERTENSION
     Route: 048
  3. HYDROCHLOROTHIAZIDE [Concomitant]
     Indication: HYPERTENSION
     Dosage: 100-50 MG DAILLY
     Route: 048
  4. LISINOPRIL [Concomitant]
     Indication: HYPERTENSION
     Route: 048
  5. LOVASTATIN [Concomitant]
     Indication: BLOOD CHOLESTEROL INCREASED
     Route: 048
  6. ERGOCALCIFEROL [Concomitant]
     Indication: VITAMIN SUPPLEMENTATION
     Route: 048
  7. ACETYLSALICYLIC ACID SRT [Concomitant]
     Indication: PROPHYLAXIS
     Route: 048

REACTIONS (3)
  - FATIGUE [None]
  - FLUSHING [None]
  - MUSCLE SPASMS [None]
